FAERS Safety Report 18419825 (Version 1)
Quarter: 2020Q4

REPORT INFORMATION
  Report Type: Spontaneous
  Country: US (occurrence: US)
  Receive Date: 20201023
  Receipt Date: 20201023
  Transmission Date: 20210114
  Serious: Yes (Hospitalization)
  Sender: FDA-Public Use
  Company Number: None

PATIENT
  Age: 73 Year
  Sex: Male
  Weight: 72.41 kg

DRUGS (15)
  1. DEXAMETHASONE 4 MG TABLET [Concomitant]
     Active Substance: DEXAMETHASONE
  2. DOCETAXEL 20 MG/ML VIAL [Concomitant]
  3. NEULASTA [Concomitant]
     Active Substance: PEGFILGRASTIM
  4. PREDNISONE 5 MG TABLET [Concomitant]
     Active Substance: PREDNISONE
  5. VITAMIN D3 [Concomitant]
     Active Substance: CHOLECALCIFEROL
  6. AMLODIPINE BESYLATE. [Concomitant]
     Active Substance: AMLODIPINE BESYLATE
  7. ONDANSETRON HCL-NACL [Concomitant]
  8. TRELSTAR 22.5 MG SYRINGE [Concomitant]
  9. CARVEDILOL. [Concomitant]
     Active Substance: CARVEDILOL
  10. ELIQUIS [Concomitant]
     Active Substance: APIXABAN
  11. LOSARTAN POTASSIUM. [Concomitant]
     Active Substance: LOSARTAN POTASSIUM
  12. LUPRON DEPOT 45 MG KIT [Concomitant]
  13. XTANDI [Concomitant]
     Active Substance: ENZALUTAMIDE
  14. NEULASTA [Suspect]
     Active Substance: PEGFILGRASTIM
     Indication: PROSTATE CANCER
     Dosage: ?          OTHER FREQUENCY:ONCE EVERY 2 WEEKS;?
     Route: 058
     Dates: start: 20200910, end: 20201023
  15. METFORMIN HCL [Concomitant]
     Active Substance: METFORMIN HYDROCHLORIDE

REACTIONS (3)
  - Unresponsive to stimuli [None]
  - Delusion [None]
  - Infection [None]

NARRATIVE: CASE EVENT DATE: 20201023
